FAERS Safety Report 8495398-1 (Version None)
Quarter: 2012Q3

REPORT INFORMATION
  Report Type: 
  Country: None (occurrence: None)
  Receive Date: 20120702
  Receipt Date: 20120702
  Transmission Date: 20120928
  Serious: Yes (Disabling)
  Sender: FDA-Public Use
  Company Number: None

PATIENT
  Sex: Female
  Weight: 58 kg

DRUGS (1)
  1. RESTYLANE I DON'T KNOW Q-MED [Suspect]
     Dosage: 3 ML

REACTIONS (2)
  - PAIN [None]
  - SWELLING [None]
